FAERS Safety Report 25244779 (Version 1)
Quarter: 2025Q2

REPORT INFORMATION
  Report Type: Spontaneous
  Country: US (occurrence: US)
  Receive Date: 20250428
  Receipt Date: 20250428
  Transmission Date: 20250716
  Serious: Yes (Other)
  Sender: BAYER HEALTHCARE LLC
  Company Number: US-BAYER-2025A051663

PATIENT
  Sex: Male

DRUGS (1)
  1. MIRALAX [Suspect]
     Active Substance: POLYETHYLENE GLYCOL 3350
     Indication: Amyotrophic lateral sclerosis
     Dosage: UNK UNK, BID FOR YEARS
     Route: 048

REACTIONS (2)
  - Choking [Unknown]
  - Product prescribing issue [Unknown]
